FAERS Safety Report 7665250-X (Version None)
Quarter: 2011Q3

REPORT INFORMATION
  Report Type: 
  Country: None (occurrence: None)
  Receive Date: 20110806
  Receipt Date: 20110518
  Transmission Date: 20111222
  Serious: Yes (Hospitalization)
  Sender: FDA-Public Use
  Company Number: US-ABBOTT-11P-163-0726824-00

PATIENT
  Sex: Male
  Weight: 83.99 kg

DRUGS (2)
  1. CRESTOR [Concomitant]
     Indication: PRODUCT USED FOR UNKNOWN INDICATION
  2. NIASPAN [Suspect]
     Indication: BLOOD CHOLESTEROL ABNORMAL
     Dosage: 1000MG X 2 TABLETS WITH BREAKFAST
     Dates: start: 20090101, end: 20110513

REACTIONS (6)
  - COLD SWEAT [None]
  - MUSCULOSKELETAL PAIN [None]
  - PAIN IN EXTREMITY [None]
  - NAUSEA [None]
  - HEPATIC ENZYME INCREASED [None]
  - BLOOD PRESSURE DECREASED [None]
